FAERS Safety Report 6479915-9 (Version None)
Quarter: 2009Q4

REPORT INFORMATION
  Report Type: 
  Country: None (occurrence: None)
  Receive Date: 20091208
  Receipt Date: 20091201
  Transmission Date: 20100525
  Serious: Yes (Other)
  Sender: FDA-Public Use
  Company Number: US-SANOFI-AVENTIS-2009SA001396

PATIENT
  Age: 50 Year
  Sex: Male
  Weight: 97.72 kg

DRUGS (6)
  1. AMBIEN [Suspect]
     Indication: INSOMNIA
     Dosage: TOOK TWO MORE TABLETS IN THE MIDDLE OF THE NIGHT
     Route: 048
     Dates: start: 20060101, end: 20071207
  2. VYTORIN [Concomitant]
     Dosage: 10/40MG
  3. GABAPENTIN [Concomitant]
     Indication: NEUROPATHY PERIPHERAL
     Dosage: 4 TABLETS PER DAY
  4. HYDROCHLOROTHIAZIDE [Concomitant]
     Indication: HYPERTENSION
  5. POTASSIUM [Concomitant]
  6. SULAR [Concomitant]
     Indication: HYPERTENSION

REACTIONS (5)
  - AMNESIA [None]
  - IMPAIRED DRIVING ABILITY [None]
  - OVERDOSE [None]
  - ROAD TRAFFIC ACCIDENT [None]
  - SOMNAMBULISM [None]
